FAERS Safety Report 15843256 (Version 3)
Quarter: 2022Q1

REPORT INFORMATION
  Report Type: Spontaneous
  Country: US (occurrence: US)
  Receive Date: 20190118
  Receipt Date: 20220331
  Transmission Date: 20220423
  Serious: No
  Sender: FDA-Public Use
  Company Number: US-PFIZER INC-2019024342

PATIENT
  Age: 65 Year
  Sex: Male

DRUGS (1)
  1. LYRICA [Suspect]
     Active Substance: PREGABALIN
     Indication: Diabetic neuropathy
     Dosage: 150 MG, 2X/DAY [1 CAPSULE BY MOUTH 2 TIMES DAY]
     Route: 048
     Dates: start: 20181226

REACTIONS (1)
  - No adverse event [Unknown]
